FAERS Safety Report 9330226 (Version 2)
Quarter: 2013Q2

REPORT INFORMATION
  Report Type: Spontaneous
  Country: VE (occurrence: VE)
  Receive Date: 20130604
  Receipt Date: 20130613
  Transmission Date: 20140414
  Serious: Yes (Other)
  Sender: FDA-Public Use
  Company Number: VE-PFIZER INC-2013169644

PATIENT
  Age: 74 Year
  Sex: Male

DRUGS (1)
  1. LYRICA [Suspect]
     Dosage: 1X/DAY
     Route: 048
     Dates: start: 2011, end: 2012

REACTIONS (4)
  - Non-Hodgkin^s lymphoma [Recovered/Resolved]
  - Tachycardia [Recovered/Resolved]
  - Panic reaction [Recovered/Resolved]
  - Nightmare [Recovered/Resolved]
